FAERS Safety Report 9337040 (Version 2)
Quarter: 2013Q3

REPORT INFORMATION
  Report Type: Spontaneous
  Country: US (occurrence: US)
  Receive Date: 20130607
  Receipt Date: 20130805
  Transmission Date: 20140515
  Serious: Yes (Hospitalization, Congenital Anomaly, Other)
  Sender: FDA-Public Use
  Company Number: US-PFIZER INC-2013170894

PATIENT
  Sex: Female

DRUGS (7)
  1. ZOLOFT [Suspect]
     Dosage: UNK
     Route: 064
     Dates: start: 2001, end: 2011
  2. ZOLOFT [Suspect]
     Dosage: UNK
     Route: 064
     Dates: end: 2004
  3. ZOLOFT [Suspect]
     Dosage: UNK
     Route: 064
     Dates: start: 200406, end: 200408
  4. AMBIEN [Concomitant]
     Dosage: UNK
     Route: 064
  5. PRENATAL VITAMINS [Concomitant]
     Dosage: UNK
     Route: 064
  6. HYDROCODONE W/ACETAMINOPHEN [Concomitant]
     Dosage: UNK
     Route: 064
  7. NIFEDIPINE [Concomitant]
     Dosage: UNK
     Route: 064

REACTIONS (11)
  - Maternal exposure during pregnancy [Unknown]
  - Ventricular septal defect [Unknown]
  - Congenital aortic anomaly [Unknown]
  - Congenital coronary artery malformation [Unknown]
  - Deafness congenital [Unknown]
  - Necrotising enterocolitis neonatal [Unknown]
  - Intraventricular haemorrhage [Unknown]
  - Arterial disorder [Unknown]
  - Aortic valve incompetence [Unknown]
  - Premature baby [Unknown]
  - Ventricular extrasystoles [Unknown]
